FAERS Safety Report 9239657 (Version 2)
Quarter: 2013Q2

REPORT INFORMATION
  Report Type: Spontaneous
  Country: BR (occurrence: BR)
  Receive Date: 20130418
  Receipt Date: 20130425
  Transmission Date: 20140414
  Serious: Yes (Other)
  Sender: FDA-Public Use
  Company Number: BR-ASTRAZENECA-2013SE24790

PATIENT
  Age: 44 Year
  Sex: Male
  Weight: 117 kg

DRUGS (5)
  1. SELOZOK [Suspect]
     Indication: CARDIAC DISORDER
     Route: 048
     Dates: start: 2012
  2. CRESTOR [Suspect]
     Indication: BLOOD CHOLESTEROL INCREASED
     Route: 048
     Dates: start: 2012, end: 201301
  3. SIMVASTATIN [Suspect]
  4. ASA [Concomitant]
     Dates: start: 2012
  5. ZETIA [Concomitant]
     Indication: BLOOD CHOLESTEROL INCREASED

REACTIONS (2)
  - Myocardial infarction [Recovered/Resolved]
  - Hepatic steatosis [Unknown]
